FAERS Safety Report 23820651 (Version 1)
Quarter: 2024Q2

REPORT INFORMATION
  Report Type: Spontaneous
  Country: US (occurrence: US)
  Receive Date: 20240506
  Receipt Date: 20240506
  Transmission Date: 20240716
  Serious: Yes (Other)
  Sender: FDA-Public Use
  Company Number: US-PFIZER INC-202400098995

PATIENT
  Age: 87 Year
  Sex: Female

DRUGS (3)
  1. VYNDAMAX [Suspect]
     Active Substance: TAFAMIDIS
     Indication: Cardiac failure
     Dosage: 61 MG, DAILY
     Route: 048
     Dates: end: 2024
  2. VYNDAMAX [Suspect]
     Active Substance: TAFAMIDIS
     Indication: Muscular weakness
  3. LASIX [Concomitant]
     Active Substance: FUROSEMIDE
     Indication: Cardiac disorder
     Dosage: 1X/DAY

REACTIONS (3)
  - Illness [Unknown]
  - Gait disturbance [Unknown]
  - Home care [Unknown]
